FAERS Safety Report 5013974-5 (Version None)
Quarter: 2006Q2

REPORT INFORMATION
  Report Type: 
  Country: None (occurrence: None)
  Receive Date: 20060525
  Receipt Date: 20060516
  Transmission Date: 20061013
  Serious: Yes (Hospitalization)
  Sender: FDA-Public Use
  Company Number: 2006-00812

PATIENT
  Age: 50 Year
  Sex: Male
  Weight: 89.8 kg

DRUGS (2)
  1. VELCADE [Suspect]
     Indication: PROSTATE CANCER
     Dosage: 1.6 MG/M2, IV BOULUS
     Route: 040
     Dates: start: 20060313, end: 20060403
  2. PRILOSEC [Concomitant]

REACTIONS (6)
  - FLATULENCE [None]
  - ILEUS [None]
  - INFUSION RELATED REACTION [None]
  - PNEUMONIA ASPIRATION [None]
  - SMALL INTESTINAL OBSTRUCTION [None]
  - THROMBOCYTOPENIA [None]
